FAERS Safety Report 20713221 (Version 1)
Quarter: 2022Q2

REPORT INFORMATION
  Report Type: Spontaneous
  Country: US (occurrence: None)
  Receive Date: 20220414
  Receipt Date: 20220414
  Transmission Date: 20220720
  Serious: No
  Sender: FDA-Public Use
  Company Number: None

PATIENT
  Age: 56 Year
  Sex: Male
  Weight: 135.17 kg

DRUGS (24)
  1. IMATINIB [Suspect]
     Active Substance: IMATINIB
     Indication: Chronic myeloid leukaemia
     Dosage: FREQUENCY : DAILY;?
     Route: 048
  2. IMATINIB [Suspect]
     Active Substance: IMATINIB
     Indication: Philadelphia chromosome positive
  3. ALBUTEROL [Suspect]
     Active Substance: ALBUTEROL
     Indication: Product used for unknown indication
  4. AMIODARONE [Concomitant]
     Active Substance: AMIODARONE
  5. AMLODIPINE [Concomitant]
     Active Substance: AMLODIPINE BESYLATE
  6. melfonnin [Concomitant]
  7. XARELTO [Concomitant]
     Active Substance: RIVAROXABAN
  8. BACTRIM DS [Concomitant]
     Active Substance: SULFAMETHOXAZOLE\TRIMETHOPRIM
  9. OXYCODONE [Concomitant]
     Active Substance: OXYCODONE
  10. ZOCOR [Concomitant]
     Active Substance: SIMVASTATIN
  11. BUSPAR [Concomitant]
     Active Substance: BUSPIRONE HYDROCHLORIDE
  12. PLAVIX [Concomitant]
     Active Substance: CLOPIDOGREL BISULFATE
  13. GABAPENTIN [Concomitant]
     Active Substance: GABAPENTIN
  14. PRAVASTATIN [Concomitant]
     Active Substance: PRAVASTATIN
  15. SODIUM [Concomitant]
     Active Substance: SODIUM
  16. GLYBURIDE [Concomitant]
     Active Substance: GLYBURIDE
  17. PROCHLORPERAZINE [Concomitant]
     Active Substance: PROCHLORPERAZINE
  18. HYDRALAZINE [Concomitant]
     Active Substance: HYDRALAZINE HYDROCHLORIDE
  19. Promethazine HCI [Concomitant]
  20. LASIX [Concomitant]
     Active Substance: FUROSEMIDE
  21. SPIRONOLACTONE [Concomitant]
     Active Substance: SPIRONOLACTONE
  22. ERGOCALCIFEROL [Concomitant]
     Active Substance: ERGOCALCIFEROL
  23. LISINOPRIL [Concomitant]
     Active Substance: LISINOPRIL
  24. MAGNESIUM OXIDE [Concomitant]
     Active Substance: MAGNESIUM OXIDE

REACTIONS (1)
  - Oesophageal dilation procedure [None]
